FAERS Safety Report 13518690 (Version 1)
Quarter: 2017Q2

REPORT INFORMATION
  Report Type: Spontaneous
  Country: US (occurrence: US)
  Receive Date: 20170505
  Receipt Date: 20170505
  Transmission Date: 20170830
  Serious: Yes (Death, Other)
  Sender: FDA-Public Use
  Company Number: US-SAOL THERAPEUTICS-2017SAO00802

PATIENT
  Sex: Male

DRUGS (2)
  1. LIORESAL [Suspect]
     Active Substance: BACLOFEN
     Indication: SPINAL CORD INJURY
  2. LIORESAL [Suspect]
     Active Substance: BACLOFEN
     Indication: MUSCLE SPASTICITY
     Dosage: 849 ?G, \DAY
     Route: 037

REACTIONS (5)
  - Drug dose omission [Unknown]
  - Sepsis [Unknown]
  - Death [Fatal]
  - Mechanical ventilation [Unknown]
  - Ulcer [Unknown]

NARRATIVE: CASE EVENT DATE: 20170430
